FAERS Safety Report 5851387-4 (Version None)
Quarter: 2008Q3

REPORT INFORMATION
  Report Type: 
  Country: None (occurrence: None)
  Receive Date: 20080820
  Receipt Date: 20080807
  Transmission Date: 20090109
  Serious: Yes (Life-Threatening, Hospitalization, Disabling)
  Sender: FDA-Public Use
  Company Number: RO-AVENTIS-200817012GDDC

PATIENT
  Age: 50 Year
  Sex: Female

DRUGS (4)
  1. APIDRA [Suspect]
     Route: 058
  2. OPTICLIK (INSULIN INJECTION PEN) [Suspect]
  3. LANTUS [Suspect]
     Route: 058
  4. DIAPREL [Suspect]

REACTIONS (3)
  - COMA [None]
  - HYPOGLYCAEMIC UNCONSCIOUSNESS [None]
  - ISCHAEMIC STROKE [None]
